FAERS Safety Report 4369163-0 (Version None)
Quarter: 2004Q2

REPORT INFORMATION
  Report Type: 
  Country: None (occurrence: None)
  Receive Date: 20040601
  Receipt Date: 20040601
  Transmission Date: 20050107
  Serious: No
  Sender: FDA-Public Use
  Company Number: None

PATIENT
  Age: 64 Year
  Sex: Male
  Weight: 77.1115 kg

DRUGS (2)
  1. PACLITAXEL [Suspect]
     Indication: NON-SMALL CELL LUNG CANCER
     Dosage: INDUCTION 225 MG/MG/M2 CONCOMM 135 MG/M2
     Dates: start: 19970815, end: 19971020
  2. CISPLATIN [Suspect]
     Indication: NON-SMALL CELL LUNG CANCER
     Dosage: INDUCTION 80 MG /M2 CONCONN 80 MG/M2
     Dates: start: 19970815, end: 19971020

REACTIONS (1)
  - NON-SMALL CELL LUNG CANCER [None]
